FAERS Safety Report 5794107-4 (Version None)
Quarter: 2008Q2

REPORT INFORMATION
  Report Type: 
  Country: None (occurrence: None)
  Receive Date: 20080625
  Receipt Date: 20080618
  Transmission Date: 20081010
  Serious: Yes (Other)
  Sender: FDA-Public Use
  Company Number: 2008016113

PATIENT
  Sex: Female

DRUGS (1)
  1. COOL MINT LISTERINE POCKETMIST (NO ACTIVE INGREDIENT) [Suspect]
     Dosage: ORAL
     Route: 048

REACTIONS (3)
  - APPLICATION SITE BURN [None]
  - GLOSSODYNIA [None]
  - TONGUE ULCERATION [None]
